FAERS Safety Report 8448649-3 (Version None)
Quarter: 2012Q2

REPORT INFORMATION
  Report Type: 
  Country: None (occurrence: None)
  Receive Date: 20120619
  Receipt Date: 20120612
  Transmission Date: 20120825
  Serious: Yes (Hospitalization)
  Sender: FDA-Public Use
  Company Number: FR-SANOFI-AVENTIS-2012SA041748

PATIENT
  Age: 71 Year
  Sex: Male

DRUGS (10)
  1. EMEND [Suspect]
     Dosage: STRENGTH: 125 MG
     Route: 048
     Dates: start: 20120322, end: 20120325
  2. DOMPERIDONE [Suspect]
     Route: 048
     Dates: start: 20120201, end: 20120330
  3. ZOFRAN [Suspect]
     Dosage: STRENGTH: 8 MG
     Route: 048
     Dates: start: 20120322, end: 20120325
  4. OXYCODONE HCL [Suspect]
     Dosage: FREQUENCY: 5 MG TWICE
     Route: 048
     Dates: start: 20120307, end: 20120322
  5. AMIODARONE HYDROCHLORIDE [Concomitant]
     Route: 048
  6. TAXOTERE [Suspect]
     Route: 042
     Dates: start: 20120322, end: 20120322
  7. PREDNISOLONE [Suspect]
     Dosage: FREQUENCY: 50 MG TWICE IN 1 MINUTE
     Route: 048
     Dates: start: 20120321, end: 20120323
  8. CISPLATIN [Suspect]
     Route: 042
     Dates: start: 20120322, end: 20120322
  9. VERAPAMIL [Suspect]
     Route: 048
     Dates: start: 20120109, end: 20120325
  10. POTASSIUM CHLORIDE [Concomitant]
     Route: 048

REACTIONS (1)
  - PANCREATITIS ACUTE [None]
